FAERS Safety Report 6123013-0 (Version None)
Quarter: 2009Q1

REPORT INFORMATION
  Report Type: 
  Country: None (occurrence: None)
  Receive Date: 20090318
  Receipt Date: 20090312
  Transmission Date: 20090719
  Serious: Yes (Life-Threatening, Disabling)
  Sender: FDA-Public Use
  Company Number: DE-MERCK-0901DEU00298

PATIENT
  Age: 62 Year
  Sex: Male
  Weight: 180 kg

DRUGS (13)
  1. JANUMET [Suspect]
     Indication: TYPE 2 DIABETES MELLITUS
     Route: 048
     Dates: start: 20081215, end: 20090122
  2. METFORMIN [Concomitant]
     Indication: TYPE 2 DIABETES MELLITUS
     Route: 048
     Dates: end: 20081214
  3. NATEGLINIDE [Concomitant]
     Indication: TYPE 2 DIABETES MELLITUS
     Route: 048
     Dates: end: 20081214
  4. FELODIPINE AND RAMIPRIL [Concomitant]
     Route: 048
  5. ALLOPURINOL [Concomitant]
     Route: 048
  6. DOXAZOSIN MESYLATE [Concomitant]
     Route: 048
  7. BISOPROLOL FUMARATE [Concomitant]
     Route: 048
  8. BEMETIZIDE AND TRIAMTERENE [Concomitant]
     Route: 048
  9. HYDROCHLOROTHIAZIDE AND TRIAMTERENE [Concomitant]
     Route: 048
  10. ASPIRIN [Concomitant]
     Route: 048
  11. RAMIPRIL [Concomitant]
     Route: 048
  12. METILDIGOXIN [Concomitant]
     Route: 048
  13. PHENPROCOUMON [Concomitant]
     Route: 048

REACTIONS (4)
  - ATRIAL FIBRILLATION [None]
  - DILATATION ATRIAL [None]
  - OEDEMA PERIPHERAL [None]
  - PLEURISY [None]
